FAERS Safety Report 4447833-3 (Version None)
Quarter: 2004Q3

REPORT INFORMATION
  Report Type: 
  Country: None (occurrence: None)
  Receive Date: 20040729
  Receipt Date: 20040620
  Transmission Date: 20050211
  Serious: No
  Sender: FDA-Public Use
  Company Number: ZLBIGIV/04/18/USA

PATIENT
  Age: 7 Year
  Sex: Female
  Weight: 31.9 kg

DRUGS (2)
  1. CARIMUNE [Suspect]
     Indication: IMMUNODEFICIENCY
     Dosage: 12 G, ONCE, I.V.
     Route: 042
     Dates: start: 20040518, end: 20040518
  2. HUMATE P (FACTOR VIII (ANTIHAEMOPHILIC FACTOR)) [Concomitant]

REACTIONS (7)
  - COUGH [None]
  - ERYTHEMA [None]
  - EYE PRURITUS [None]
  - FACE OEDEMA [None]
  - HYPERSENSITIVITY [None]
  - PRURITUS [None]
  - URTICARIA [None]
